FAERS Safety Report 16472627 (Version 3)
Quarter: 2020Q1

REPORT INFORMATION
  Report Type: Spontaneous
  Country: AR (occurrence: AR)
  Receive Date: 20190625
  Receipt Date: 20200210
  Transmission Date: 20200409
  Serious: Yes (Other)
  Sender: FDA-Public Use
  Company Number: AR-ROCHE-2342524

PATIENT
  Sex: Female
  Weight: 55 kg

DRUGS (8)
  1. MABTHERA [Suspect]
     Active Substance: RITUXIMAB
     Indication: DIFFUSE LARGE B-CELL LYMPHOMA
     Dosage: 6 CYCLES?2 MORE CYCLES BEFORE R-GIFOX
     Route: 065
     Dates: start: 20171109
  2. OXALIPLATIN. [Concomitant]
     Active Substance: OXALIPLATIN
     Indication: DIFFUSE LARGE B-CELL LYMPHOMA
     Dosage: 6 CYLES
     Route: 065
     Dates: start: 201810, end: 201904
  3. CYCLOPHOSPHAMIDE. [Concomitant]
     Active Substance: CYCLOPHOSPHAMIDE
     Indication: DIFFUSE LARGE B-CELL LYMPHOMA
     Dosage: 6 CYCLES?2 MORE CYCLES BEFORE R-GIFOX
     Route: 065
     Dates: start: 20171109
  4. IFOSFAMIDE. [Concomitant]
     Active Substance: IFOSFAMIDE
     Indication: DIFFUSE LARGE B-CELL LYMPHOMA
     Dosage: 6 CYCLES
     Route: 065
  5. GEMCITABINE. [Concomitant]
     Active Substance: GEMCITABINE
     Indication: DIFFUSE LARGE B-CELL LYMPHOMA
     Dosage: 6 CYCLES
     Route: 065
     Dates: start: 201810, end: 201904
  6. PREDNISOLONE. [Concomitant]
     Active Substance: PREDNISOLONE
     Indication: DIFFUSE LARGE B-CELL LYMPHOMA
     Dosage: 6 CYCLES?2 MORE CYCLES BEFORE R-GIFOX
     Route: 065
     Dates: start: 20171109
  7. VINCRISTINE [Concomitant]
     Active Substance: VINCRISTINE
     Indication: DIFFUSE LARGE B-CELL LYMPHOMA
     Dosage: 6 CYCLES?2 MORE CYCLES BEFORE R-GIFOX
     Route: 065
     Dates: start: 20171109
  8. DOXORUBICIN [Concomitant]
     Active Substance: DOXORUBICIN
     Indication: DIFFUSE LARGE B-CELL LYMPHOMA
     Dosage: 6 CYCLES?2 MORE CYCLES BEFORE R-GIFOX
     Route: 065
     Dates: start: 20171109

REACTIONS (4)
  - Pleural effusion [Unknown]
  - Axillary mass [Unknown]
  - Subclavian vein thrombosis [Unknown]
  - Axillary vein thrombosis [Unknown]
